FAERS Safety Report 10043437 (Version 1)
Quarter: 2014Q1

REPORT INFORMATION
  Report Type: Spontaneous
  Country: US (occurrence: US)
  Receive Date: 20140328
  Receipt Date: 20140328
  Transmission Date: 20141002
  Serious: No
  Sender: FDA-Public Use
  Company Number: US-PFIZER INC-2014086063

PATIENT
  Age: 53 Year
  Sex: Female
  Weight: 63.95 kg

DRUGS (2)
  1. NEURONTIN [Suspect]
     Indication: FIBROMYALGIA
     Dosage: UNK
  2. PAXIL [Concomitant]
     Dosage: 10 MG, UNK

REACTIONS (1)
  - Drug intolerance [Unknown]
